FAERS Safety Report 10694831 (Version 2)
Quarter: 2015Q1

REPORT INFORMATION
  Report Type: Report from Study
  Country: DK (occurrence: DK)
  Receive Date: 20150107
  Receipt Date: 20150107
  Transmission Date: 20150721
  Serious: Yes (Death, Life-Threatening, Hospitalization)
  Sender: FDA-Public Use
  Company Number: PHHO2011DK07804

PATIENT
  Age: 73 Year
  Sex: Female
  Weight: 45 kg

DRUGS (9)
  1. BLINDED ALISKIREN [Suspect]
     Active Substance: ALISKIREN
     Indication: CARDIAC FAILURE
     Dosage: CODE NOT BROKEN
     Route: 048
     Dates: start: 20110615, end: 20140405
  2. FUROSEMIDE. [Concomitant]
     Active Substance: FUROSEMIDE
     Dosage: 20 MG, QID
     Route: 042
     Dates: start: 20140404, end: 20140407
  3. ASA [Concomitant]
     Active Substance: ASPIRIN
     Indication: MYOCARDIAL ISCHAEMIA
     Dosage: 75 MG, QD
     Route: 065
     Dates: start: 20050627, end: 20140404
  4. SIMVASTATIN. [Concomitant]
     Active Substance: SIMVASTATIN
     Indication: MYOCARDIAL ISCHAEMIA
     Dosage: 40 MG, QD
     Route: 065
     Dates: start: 20050627
  5. BLINDED NO TREATMENT RECEIVED [Suspect]
     Active Substance: UNSPECIFIED INGREDIENT
     Indication: CARDIAC FAILURE
     Dosage: CODE NOT BROKEN
     Route: 048
     Dates: start: 20110615, end: 20140405
  6. CARVEDILOL. [Concomitant]
     Active Substance: CARVEDILOL
     Indication: CARDIAC FAILURE
     Dosage: 25 MG, BID
     Route: 065
     Dates: start: 201001
  7. FUROSEMIDE. [Concomitant]
     Active Substance: FUROSEMIDE
     Indication: CARDIAC FAILURE
     Dosage: 40 MG, QD
     Route: 065
  8. BLINDED ENALAPRIL [Suspect]
     Active Substance: ENALAPRIL
     Indication: CARDIAC FAILURE
     Dosage: CODE NOT BROKEN
     Route: 048
     Dates: start: 20110615, end: 20140405
  9. HYDROCHLOROTHIAZIDE. [Concomitant]
     Active Substance: HYDROCHLOROTHIAZIDE
     Indication: HYPERTENSION
     Dosage: 2.5 MG, QD
     Route: 065
     Dates: start: 20110708

REACTIONS (8)
  - Ventricular fibrillation [Recovered/Resolved]
  - Concomitant disease progression [Recovered/Resolved]
  - Atrial fibrillation [Recovered/Resolved]
  - Orthostatic hypotension [Recovered/Resolved]
  - Sudden cardiac death [Fatal]
  - Cardiac arrest [Fatal]
  - Cardiac failure [Recovered/Resolved]
  - Device lead issue [Recovered/Resolved]

NARRATIVE: CASE EVENT DATE: 20110503
